FAERS Safety Report 10612243 (Version 2)
Quarter: 2014Q4

REPORT INFORMATION
  Report Type: Report from Study
  Country: FR (occurrence: FR)
  Receive Date: 20141127
  Receipt Date: 20141208
  Transmission Date: 20150529
  Serious: Yes (Other)
  Sender: FDA-Public Use
  Company Number: FR-ROCHE-1495707

PATIENT
  Age: 60 Year
  Sex: Male
  Weight: 79 kg

DRUGS (6)
  1. BLEOMYCIN [Concomitant]
     Active Substance: BLEOMYCIN SULFATE
     Indication: DIFFUSE LARGE B-CELL LYMPHOMA
     Dosage: FREQUENCY AND DOSAGE AS PER PROTOCOL. 4 CYCLES IN INDUCTION PHASE.
     Route: 065
     Dates: start: 20141007
  2. PREDNISONE. [Concomitant]
     Active Substance: PREDNISONE
     Indication: DIFFUSE LARGE B-CELL LYMPHOMA
     Dosage: FREQUENCY AND DOSAGE AS PER PROTOCOL. 4 CYCLES IN INDUCTION PHASE.
     Route: 065
     Dates: start: 20141007
  3. VINDESINE [Concomitant]
     Active Substance: VINDESINE
     Indication: DIFFUSE LARGE B-CELL LYMPHOMA
     Dosage: FREQUENCY AND DOSAGE AS PER PROTOCOL. 4 CYCLES IN INDUCTION PHASE.
     Route: 065
     Dates: start: 20141007
  4. OBINUTUZUMAB [Suspect]
     Active Substance: OBINUTUZUMAB
     Indication: DIFFUSE LARGE B-CELL LYMPHOMA
     Dosage: FREQUENCY AND DOSAGE AS PER PROTOCOL. 4 CYCLES IN INDUCTION PHASE.?LAST DOSE PRIOR TO SAE ON 04/NOV/
     Route: 065
     Dates: start: 20141007
  5. DOXORUBICIN [Concomitant]
     Active Substance: DOXORUBICIN
     Indication: DIFFUSE LARGE B-CELL LYMPHOMA
     Dosage: FREQUENCY AND DOSAGE AS PER PROTOCOL. 4 CYCLES IN INDUCTION PHASE.
     Route: 065
     Dates: start: 20141007
  6. CYCLOPHOSPHAMIDE. [Concomitant]
     Active Substance: CYCLOPHOSPHAMIDE
     Indication: DIFFUSE LARGE B-CELL LYMPHOMA
     Dosage: FREQUENCY AND DOSAGE AS PER PROTOCOL. 4 CYCLES IN INDUCTION PHASE.
     Route: 065
     Dates: start: 20141007

REACTIONS (1)
  - Mucosal inflammation [Recovered/Resolved]

NARRATIVE: CASE EVENT DATE: 20141111
